FAERS Safety Report 24158884 (Version 1)
Quarter: 2024Q3

REPORT INFORMATION
  Report Type: Spontaneous
  Country: US (occurrence: US)
  Receive Date: 20240731
  Receipt Date: 20240731
  Transmission Date: 20241017
  Serious: No
  Sender: SANOFI AVENTIS
  Company Number: US-SA-SAC20240725001380

PATIENT
  Age: 52 Year
  Sex: Female
  Weight: 72.575 kg

DRUGS (1)
  1. DUPIXENT [Suspect]
     Active Substance: DUPILUMAB
     Indication: Dermatitis atopic
     Dosage: 300 MG QOW
     Route: 058

REACTIONS (4)
  - Rash erythematous [Unknown]
  - Paraesthesia [Unknown]
  - Pruritus [Unknown]
  - Skin swelling [Unknown]
